FAERS Safety Report 5105552-4 (Version None)
Quarter: 2006Q3

REPORT INFORMATION
  Report Type: 
  Country: None (occurrence: None)
  Receive Date: 20060915
  Receipt Date: 20060905
  Transmission Date: 20061208
  Serious: Yes (Death, Hospitalization)
  Sender: FDA-Public Use
  Company Number: US-JNJFOC-20060901342

PATIENT
  Age: 43 Year
  Sex: Male

DRUGS (11)
  1. TOPAMAX [Suspect]
     Indication: DRUG USE FOR UNKNOWN INDICATION
  2. OLANZAPINE [Concomitant]
  3. RIZATRIPTAN [Concomitant]
  4. METHOTRIMEPRAZINE [Concomitant]
  5. ARTHROTEC [Concomitant]
  6. FLUCONAZOLE [Concomitant]
  7. GABAPENTIN [Concomitant]
     Dosage: STARTED WITHIN TWO WEEKS OF HIS DEATH
  8. CIPROFLAXACIN [Concomitant]
     Dosage: STARTED WITHIN TWO WEEKS OF HIS DEATH
  9. LOXAPINE [Concomitant]
     Dosage: STARTED WHILE IN HOSPITAL
  10. CLONAZEPAM [Concomitant]
     Dosage: STARTED WHILE IN HOSPITAL
  11. LORAZEPAM [Concomitant]
     Dosage: STARTED WHILE IN HOSPITAL

REACTIONS (2)
  - DEATH [None]
  - DRUG LEVEL INCREASED [None]
